FAERS Safety Report 6629136-1 (Version None)
Quarter: 2010Q1

REPORT INFORMATION
  Report Type: 
  Country: None (occurrence: None)
  Receive Date: 20100311
  Receipt Date: 20090723
  Transmission Date: 20100710
  Serious: No
  Sender: FDA-Public Use
  Company Number: US-BIOGENIDEC-2009BI022936

PATIENT
  Age: 58 Year
  Sex: Female

DRUGS (4)
  1. AVONEX [Suspect]
     Indication: MULTIPLE SCLEROSIS
     Route: 030
     Dates: start: 20090401, end: 20090401
  2. AVONEX [Suspect]
     Route: 030
     Dates: start: 20090401, end: 20090401
  3. AVONEX [Suspect]
     Route: 030
     Dates: start: 20090401, end: 20090401
  4. AVONEX [Suspect]
     Route: 030
     Dates: start: 20090401

REACTIONS (4)
  - EYE HAEMORRHAGE [None]
  - INJECTION SITE HAEMATOMA [None]
  - INJECTION SITE HAEMORRHAGE [None]
  - INJECTION SITE PAIN [None]
